FAERS Safety Report 19593520 (Version 1)
Quarter: 2021Q3

REPORT INFORMATION
  Report Type: Spontaneous
  Country: RU (occurrence: RU)
  Receive Date: 20210722
  Receipt Date: 20210722
  Transmission Date: 20211014
  Serious: Yes (Other)
  Sender: FDA-Public Use
  Company Number: NVSC2021RU156930

PATIENT
  Sex: Female

DRUGS (1)
  1. RISARG [Suspect]
     Active Substance: RIBOCICLIB SUCCINATE
     Indication: BREAST CANCER
     Dosage: UNK
     Route: 065

REACTIONS (3)
  - Cardiomyopathy [Unknown]
  - Asthenia [Unknown]
  - Electrocardiogram QT prolonged [Unknown]
